FAERS Safety Report 9601814 (Version 1)
Quarter: 2013Q4

REPORT INFORMATION
  Report Type: Spontaneous
  Country: FR (occurrence: FR)
  Receive Date: 20131007
  Receipt Date: 20131007
  Transmission Date: 20140711
  Serious: Yes (Death, Life-Threatening, Hospitalization)
  Sender: FDA-Public Use
  Company Number: FR-BAYER-2013-116024

PATIENT
  Age: 68 Year
  Sex: Male
  Weight: 91.5 kg

DRUGS (26)
  1. CIFLOX [Suspect]
     Indication: PNEUMONIA
     Dosage: UNK
     Route: 042
     Dates: start: 20130524, end: 20130527
  2. CIFLOX [Suspect]
     Indication: PNEUMONIA
     Dosage: UNK
     Route: 042
     Dates: start: 20130617, end: 20130618
  3. CIFLOX [Suspect]
     Indication: PNEUMONIA
     Dosage: UNK
     Dates: start: 20130709
  4. ZYVOXID [Suspect]
     Indication: STAPHYLOCOCCAL SEPSIS
     Dosage: UNK
     Route: 042
     Dates: start: 20130621, end: 20130712
  5. TAZOCILLINE [Suspect]
     Indication: PNEUMONIA
     Dosage: UNK
     Route: 042
     Dates: start: 20130524, end: 20130527
  6. TAZOCILLINE [Suspect]
     Indication: PNEUMONIA
     Dosage: UNK
     Route: 042
     Dates: start: 20130617, end: 20130618
  7. TAZOCILLINE [Suspect]
     Indication: PNEUMONIA
     Dosage: UNK
     Route: 042
     Dates: start: 20130709
  8. VANCOCIN [Suspect]
     Dosage: UNK
     Route: 042
     Dates: start: 20130618, end: 20130621
  9. AUGMENTIN [Suspect]
     Dosage: UNK
     Route: 042
     Dates: start: 20130527, end: 20130531
  10. VANCOMYCIN [Suspect]
     Indication: CLOSTRIDIUM DIFFICILE COLITIS
     Dosage: UNK
     Route: 048
     Dates: start: 20130625, end: 20130705
  11. METRONIDAZOLE [Concomitant]
     Dosage: UNK
     Route: 048
     Dates: start: 20130706, end: 20130715
  12. SPIRIVA [Concomitant]
  13. SYMBICORT [Concomitant]
  14. TRIATEC [Concomitant]
     Dosage: 10 MG, QD
  15. APROVEL [Concomitant]
     Dosage: 300 MG, QD
  16. HYPERIUM [Concomitant]
     Dosage: 1 MG, BID
  17. AMLOR [Concomitant]
     Dosage: 5 MG, QD
  18. LASILIX [Concomitant]
     Dosage: 250 MG, QD
  19. KARDEGIC [ACETYLSALICYLATE LYSINE,ACETYLSALICYLIC ACID] [Concomitant]
     Dosage: 75 MG, QD
  20. LANTUS [Concomitant]
     Dosage: 12 IU, IN EVENING
  21. HUMALOG MIX [INSULIN LISPRO] [Concomitant]
     Dosage: 6 IU, QD IN MORNING, MIDDAY AND EVENING
  22. PARACETAMOL [Concomitant]
  23. CETIRIZINE [Concomitant]
     Dosage: 10 MG, EVENING
  24. NORSET [Concomitant]
     Dosage: 15 MG,EVENING
  25. BETNEVAL [Concomitant]
     Dosage: 1 APPLICATION DAILY
  26. SILVER NITRATE [SILVER NITRATE] [Concomitant]
     Dosage: 1 APPLICATION DAILY

REACTIONS (5)
  - Vascular purpura [Fatal]
  - Pruritus [Fatal]
  - Hypersensitivity vasculitis [Fatal]
  - Vasculitis necrotising [Fatal]
  - Skin necrosis [Fatal]
